FAERS Safety Report 24874351 (Version 2)
Quarter: 2025Q4

REPORT INFORMATION
  Report Type: Spontaneous
  Country: US (occurrence: US)
  Receive Date: 20250122
  Receipt Date: 20251016
  Transmission Date: 20260118
  Serious: No
  Sender: PFIZER
  Company Number: US-PFIZER INC-PV202500008174

PATIENT
  Age: 68 Year
  Sex: Female

DRUGS (34)
  1. PAXLOVID [Suspect]
     Active Substance: NIRMATRELVIR\RITONAVIR
     Indication: COVID-19 treatment
     Dosage: UNK
     Dates: start: 20240817, end: 20240821
  2. GLUCOPHAGE [Concomitant]
     Active Substance: METFORMIN HYDROCHLORIDE
  3. AMITRIPTYLINE HYDROCHLORIDE [Concomitant]
     Active Substance: AMITRIPTYLINE HYDROCHLORIDE
  4. DALFAMPRIDINE [Concomitant]
     Active Substance: DALFAMPRIDINE
  5. GABAPENTIN [Concomitant]
     Active Substance: GABAPENTIN
  6. BACLOFEN [Concomitant]
     Active Substance: BACLOFEN
  7. VENLAFAXINE [Concomitant]
     Active Substance: VENLAFAXINE HYDROCHLORIDE
  8. ATORVASTATIN [Concomitant]
     Active Substance: ATORVASTATIN
  9. ACETAMINOPHEN\HYDROCODONE [Concomitant]
     Active Substance: ACETAMINOPHEN\HYDROCODONE
  10. LORAZEPAM [Concomitant]
     Active Substance: LORAZEPAM
  11. NYSTATIN [Concomitant]
     Active Substance: NYSTATIN
  12. NOVOLOG [Concomitant]
     Active Substance: INSULIN ASPART
  13. ZYRTEC [Concomitant]
     Active Substance: CETIRIZINE HYDROCHLORIDE
  14. BENADRYL [Concomitant]
     Active Substance: DIPHENHYDRAMINE HYDROCHLORIDE
  15. EMGALITY [Concomitant]
     Active Substance: GALCANEZUMAB-GNLM
  16. MAGNESIUM OXIDE [Concomitant]
     Active Substance: MAGNESIUM OXIDE
  17. ONDANSETRON [Concomitant]
     Active Substance: ONDANSETRON
  18. ALBUTEROL [Concomitant]
     Active Substance: ALBUTEROL
  19. EPINEPHRINE [Concomitant]
     Active Substance: EPINEPHRINE
  20. MELATONIN [Concomitant]
     Active Substance: MELATONIN
  21. RIBOFLAVIN [Concomitant]
     Active Substance: RIBOFLAVIN
  22. VITAMIN D3 [Concomitant]
     Active Substance: CHOLECALCIFEROL
  23. ZADITOR [Concomitant]
     Active Substance: KETOTIFEN FUMARATE
  24. MAGNESIUM CITRATE [Concomitant]
     Active Substance: MAGNESIUM CITRATE
  25. FLONASE [Concomitant]
     Active Substance: FLUTICASONE PROPIONATE
  26. CITRUCEL [Concomitant]
     Active Substance: METHYLCELLULOSE (4000 CPS)
  27. REGLAN [Concomitant]
     Active Substance: METOCLOPRAMIDE HYDROCHLORIDE
  28. BOTOX [Concomitant]
     Active Substance: ONABOTULINUMTOXINA
  29. PREGABALIN [Concomitant]
     Active Substance: PREGABALIN
  30. AMPYRA [Concomitant]
     Active Substance: DALFAMPRIDINE
  31. SOLU-MEDROL [Concomitant]
     Active Substance: METHYLPREDNISOLONE SODIUM SUCCINATE
  32. TYLENOL [Concomitant]
     Active Substance: ACETAMINOPHEN
  33. VICKS NYQUIL [Concomitant]
     Active Substance: ACETAMINOPHEN\DEXTROMETHORPHAN HYDROBROMIDE\DOXYLAMINE SUCCINATE
  34. OCREVUS [Concomitant]
     Active Substance: OCRELIZUMAB
     Dosage: UNK

REACTIONS (4)
  - Influenza [Not Recovered/Not Resolved]
  - Nasal congestion [Not Recovered/Not Resolved]
  - Rhinorrhoea [Not Recovered/Not Resolved]
  - Asthenia [Not Recovered/Not Resolved]
